FAERS Safety Report 25990446 (Version 1)
Quarter: 2025Q4

REPORT INFORMATION
  Report Type: Spontaneous
  Country: US (occurrence: US)
  Receive Date: 20251103
  Receipt Date: 20251103
  Transmission Date: 20260117
  Serious: No
  Sender: ELI LILLY AND COMPANY
  Company Number: US-ELI_LILLY_AND_COMPANY-US202510013007

PATIENT
  Age: 55 Year

DRUGS (8)
  1. MOUNJARO [Suspect]
     Active Substance: TIRZEPATIDE
     Indication: Type 2 diabetes mellitus
     Dosage: 2.5 MG, UNKNOWN
     Route: 058
     Dates: start: 20250910
  2. MOUNJARO [Suspect]
     Active Substance: TIRZEPATIDE
     Indication: Type 2 diabetes mellitus
     Dosage: 2.5 MG, UNKNOWN
     Route: 058
     Dates: start: 20250910
  3. MOUNJARO [Suspect]
     Active Substance: TIRZEPATIDE
     Indication: Type 2 diabetes mellitus
     Dosage: 2.5 MG, UNKNOWN
     Route: 058
     Dates: start: 20250910
  4. MOUNJARO [Suspect]
     Active Substance: TIRZEPATIDE
     Indication: Type 2 diabetes mellitus
     Dosage: 2.5 MG, UNKNOWN
     Route: 058
     Dates: start: 20250910
  5. MOUNJARO [Suspect]
     Active Substance: TIRZEPATIDE
     Indication: Coeliac disease
  6. MOUNJARO [Suspect]
     Active Substance: TIRZEPATIDE
     Indication: Coeliac disease
  7. MOUNJARO [Suspect]
     Active Substance: TIRZEPATIDE
     Indication: Coeliac disease
  8. MOUNJARO [Suspect]
     Active Substance: TIRZEPATIDE
     Indication: Coeliac disease

REACTIONS (1)
  - Nausea [Recovered/Resolved]
